FAERS Safety Report 13136542 (Version 2)
Quarter: 2017Q1

REPORT INFORMATION
  Report Type: Report from Study
  Country: US (occurrence: US)
  Receive Date: 20170123
  Receipt Date: 20170209
  Transmission Date: 20170428
  Serious: No
  Sender: FDA-Public Use
  Company Number: PHEH2017US002106

PATIENT
  Age: 49 Year
  Sex: Female
  Weight: 51.7 kg

DRUGS (1)
  1. GILENYA [Suspect]
     Active Substance: FINGOLIMOD HYDROCHLORIDE
     Indication: MULTIPLE SCLEROSIS
     Dosage: 0.5 MG, QD
     Route: 048
     Dates: start: 20170113

REACTIONS (3)
  - Somnolence [Unknown]
  - Drug monitoring procedure not performed [Unknown]
  - Headache [Unknown]

NARRATIVE: CASE EVENT DATE: 201701
